FAERS Safety Report 8459040-8 (Version None)
Quarter: 2012Q2

REPORT INFORMATION
  Report Type: 
  Country: None (occurrence: None)
  Receive Date: 20120618
  Receipt Date: 20120601
  Transmission Date: 20120825
  Serious: Yes (Death)
  Sender: FDA-Public Use
  Company Number: UTC-018393

PATIENT
  Age: 74 Year
  Sex: Female
  Weight: 46.81 kg

DRUGS (3)
  1. TYVASO [Suspect]
     Indication: COR PULMONALE
     Dosage: 216 MCG (54 MCG, 4 IN 1 D) INHALATION
     Route: 055
     Dates: start: 20120203
  2. DIURETICS (DIURETICS) [Concomitant]
  3. ADCIRCA [Concomitant]

REACTIONS (1)
  - DEATH [None]
